FAERS Safety Report 12314579 (Version 1)
Quarter: 2016Q2

REPORT INFORMATION
  Report Type: Spontaneous
  Country: US (occurrence: US)
  Receive Date: 20160428
  Receipt Date: 20160428
  Transmission Date: 20160815
  Serious: No
  Sender: FDA-Public Use
  Company Number: ALCN2016US002837

PATIENT
  Age: 73 Year
  Sex: Female

DRUGS (2)
  1. ZADITOR [Suspect]
     Active Substance: KETOTIFEN FUMARATE
     Indication: OCULAR HYPERAEMIA
  2. ZADITOR [Suspect]
     Active Substance: KETOTIFEN FUMARATE
     Indication: EYE IRRITATION
     Dosage: 1 GTT, QD
     Route: 047
     Dates: start: 20160419, end: 20160419

REACTIONS (2)
  - Eyelid margin crusting [Not Recovered/Not Resolved]
  - Eye swelling [Not Recovered/Not Resolved]

NARRATIVE: CASE EVENT DATE: 20160420
